FAERS Safety Report 4880156-7 (Version None)
Quarter: 2006Q1

REPORT INFORMATION
  Report Type: 
  Country: None (occurrence: None)
  Receive Date: 20060111
  Receipt Date: 20051220
  Transmission Date: 20060701
  Serious: Yes (Hospitalization, Other)
  Sender: FDA-Public Use
  Company Number: USA0509108525

PATIENT
  Age: 39 Year
  Sex: Male
  Weight: 174.1 kg

DRUGS (7)
  1. CYMBALTA [Suspect]
     Indication: MAJOR DEPRESSION
     Dosage: 30 MG
     Dates: start: 20050401, end: 20050501
  2. LEXAPRO [Concomitant]
  3. EFFEXOR [Concomitant]
  4. CLARITIN [Concomitant]
  5. LOTREL [Concomitant]
  6. ANDROGEL [Concomitant]
  7. ZOCOR [Concomitant]

REACTIONS (7)
  - ALANINE AMINOTRANSFERASE INCREASED [None]
  - BLOOD CHOLESTEROL INCREASED [None]
  - BLOOD TRIGLYCERIDES INCREASED [None]
  - DEHYDRATION [None]
  - DIABETES MELLITUS NON-INSULIN-DEPENDENT [None]
  - VISION BLURRED [None]
  - WEIGHT DECREASED [None]
